FAERS Safety Report 5929284-5 (Version None)
Quarter: 2008Q4

REPORT INFORMATION
  Report Type: 
  Country: None (occurrence: None)
  Receive Date: 20081024
  Receipt Date: 20081014
  Transmission Date: 20090506
  Serious: Yes (Other)
  Sender: FDA-Public Use
  Company Number: DE-JNJFOC-20081001778

PATIENT
  Age: 58 Year
  Sex: Male

DRUGS (5)
  1. REMICADE [Suspect]
     Route: 042
  2. REMICADE [Suspect]
     Indication: PSORIASIS
     Route: 042
  3. DEXAMETHASONE [Concomitant]
     Route: 061
  4. DITHRANOL [Concomitant]
  5. DERMOXINALE [Concomitant]

REACTIONS (1)
  - LYMPHOPENIA [None]
